FAERS Safety Report 8219039-3 (Version None)
Quarter: 2012Q1

REPORT INFORMATION
  Report Type: 
  Country: None (occurrence: None)
  Receive Date: 20120319
  Receipt Date: 20120314
  Transmission Date: 20120608
  Serious: Yes (Other)
  Sender: FDA-Public Use
  Company Number: BR-PFIZER INC-2012068396

PATIENT
  Age: 39 Year
  Sex: Female
  Weight: 54 kg

DRUGS (2)
  1. VARENICLINE TARTRATE [Suspect]
     Indication: TOBACCO USER
     Dosage: 0.5 MG DAILY
     Route: 048
     Dates: start: 20120229, end: 20120305
  2. SYNTHROID [Concomitant]
     Indication: HYPOTHYROIDISM
     Dosage: UNK

REACTIONS (10)
  - FATIGUE [None]
  - FLATULENCE [None]
  - HEPATIC ENZYME ABNORMAL [None]
  - BEDRIDDEN [None]
  - URINE COLOUR ABNORMAL [None]
  - HEADACHE [None]
  - HEPATITIS [None]
  - HEPATIC PAIN [None]
  - DIARRHOEA [None]
  - DECREASED APPETITE [None]
